FAERS Safety Report 9173899 (Version 1)
Quarter: 2013Q1

REPORT INFORMATION
  Report Type: Spontaneous
  Country: US (occurrence: None)
  Receive Date: 20130318
  Receipt Date: 20130318
  Transmission Date: 20140127
  Serious: Yes (Hospitalization, Disabling, Other)
  Sender: FDA-Public Use
  Company Number: None

PATIENT
  Age: 62 Year
  Sex: Male
  Weight: 65.77 kg

DRUGS (2)
  1. CYMBALTA [Suspect]
     Indication: DEPRESSION
     Route: 048
     Dates: start: 20120601, end: 20120619
  2. CYMBALTA [Suspect]
     Indication: PAIN
     Route: 048
     Dates: start: 20120601, end: 20120619

REACTIONS (2)
  - Disability [None]
  - Activities of daily living impaired [None]
